FAERS Safety Report 6820949-X (Version None)
Quarter: 2010Q3

REPORT INFORMATION
  Report Type: 
  Country: None (occurrence: None)
  Receive Date: 20100707
  Receipt Date: 20071109
  Transmission Date: 20110219
  Serious: No
  Sender: FDA-Public Use
  Company Number: US-PFIZER INC-2007079286

PATIENT
  Sex: Female

DRUGS (2)
  1. ZOLOFT [Suspect]
     Indication: DEPRESSION
     Dates: start: 20070101, end: 20070903
  2. REBIF [Suspect]
     Indication: MULTIPLE SCLEROSIS
     Dosage: 3 EVERY 1 WEEKS
     Route: 058
     Dates: start: 20070824, end: 20070903

REACTIONS (4)
  - FEELING OF BODY TEMPERATURE CHANGE [None]
  - INSOMNIA [None]
  - NAUSEA [None]
  - PAIN [None]
